FAERS Safety Report 5029818-1 (Version None)
Quarter: 2006Q2

REPORT INFORMATION
  Report Type: 
  Country: None (occurrence: None)
  Receive Date: 20060620
  Receipt Date: 20060601
  Transmission Date: 20061013
  Serious: Yes (Death, Hospitalization)
  Sender: FDA-Public Use
  Company Number: DE-AMGEN-UK181770

PATIENT
  Age: 80 Year
  Sex: Male

DRUGS (6)
  1. ARANESP [Suspect]
     Indication: ANAEMIA OF MALIGNANT DISEASE
     Route: 065
  2. RITUXIMAB [Concomitant]
     Route: 065
  3. CYCLOPHOSPHAMIDE [Concomitant]
     Route: 065
  4. DOXORUBICIN HYDROCHLORIDE [Concomitant]
     Route: 065
  5. ONCOVIN [Concomitant]
     Route: 065
  6. PREDNISOLONE [Concomitant]
     Route: 065

REACTIONS (1)
  - PNEUMONIA [None]
